FAERS Safety Report 8463245 (Version 3)
Quarter: 2013Q2

REPORT INFORMATION
  Report Type: Spontaneous
  Country: BR (occurrence: BR)
  Receive Date: 20120316
  Receipt Date: 20130606
  Transmission Date: 20140414
  Serious: Yes (Other)
  Sender: FDA-Public Use
  Company Number: BR-AMGEN-BRASP2012015427

PATIENT
  Age: 50 Year
  Sex: Female
  Weight: 68 kg

DRUGS (6)
  1. ENBREL [Suspect]
     Indication: RHEUMATOID ARTHRITIS
     Dosage: UNK
     Route: 058
     Dates: start: 200908, end: 201112
  2. ENBREL [Suspect]
     Dosage: 50 MG, ONCE WEEKLY
     Route: 058
     Dates: start: 201201
  3. ENBREL [Suspect]
     Dosage: 50 MG, ONCE WEEKLY
     Route: 058
     Dates: start: 201301
  4. ARAVA [Concomitant]
     Dosage: 20 MG, 1X/DAY
  5. ENALAPRIL [Concomitant]
     Dosage: 10 MG, 1X/DAY
  6. ENALAPRIL [Concomitant]
     Dosage: 1 TABLET (10 MG) A DAY

REACTIONS (7)
  - Obesity surgery [Unknown]
  - Blood pressure abnormal [Unknown]
  - Varicose vein [Not Recovered/Not Resolved]
  - Fatigue [Not Recovered/Not Resolved]
  - Product quality issue [Unknown]
  - Injection site pain [Not Recovered/Not Resolved]
  - Injection site discomfort [Unknown]
